FAERS Safety Report 19892903 (Version 4)
Quarter: 2022Q1

REPORT INFORMATION
  Report Type: Spontaneous
  Country: CA (occurrence: CA)
  Receive Date: 20210928
  Receipt Date: 20220208
  Transmission Date: 20220424
  Serious: Yes (Other)
  Sender: FDA-Public Use
  Company Number: CA-PFIZER INC-202101089730

PATIENT
  Age: 51 Year
  Sex: Female

DRUGS (3)
  1. XELJANZ [Suspect]
     Active Substance: TOFACITINIB CITRATE
     Indication: Psoriatic arthropathy
     Dosage: 5 MG, 2X/DAY
     Route: 048
     Dates: start: 20210812, end: 202108
  2. EPINEPHRINE [Concomitant]
     Active Substance: EPINEPHRINE
     Dosage: UNK (PEN)
  3. NALTREXONE [Concomitant]
     Active Substance: NALTREXONE
     Dosage: 4.5 MG, 1X/DAY AT BEDTIME

REACTIONS (2)
  - Sinus disorder [Not Recovered/Not Resolved]
  - Nasal discomfort [Unknown]

NARRATIVE: CASE EVENT DATE: 20210101
